FAERS Safety Report 8321816-5 (Version None)
Quarter: 2012Q2

REPORT INFORMATION
  Report Type: 
  Country: None (occurrence: None)
  Receive Date: 20120426
  Receipt Date: 20120414
  Transmission Date: 20120825
  Serious: Yes (Death, Hospitalization)
  Sender: FDA-Public Use
  Company Number: 2012AP001032

PATIENT
  Age: 79 Year
  Sex: Male

DRUGS (8)
  1. ERLOTINIB HYDROCHLORIDE [Suspect]
     Indication: NON-SMALL CELL LUNG CANCER
     Dosage: 150 MG;QD
  2. SIMVASTATIN [Concomitant]
  3. AMOXICILLIN W/CLAVULANATE POTASSIUM (AMOXICILLIN W/CLAVULANATE POTASSI [Concomitant]
  4. CIPROFLOXACIN [Suspect]
     Indication: BRONCHOPNEUMONIA
     Dosage: 500 MG;BID
  5. CARBASALATE CALCIUM (CARBASALATE CALCIUM) [Concomitant]
  6. NADROPARIN (NADROPARIN) [Concomitant]
  7. METOPROLOL SUCCINATE [Concomitant]
  8. CLOPIDOGREL [Concomitant]

REACTIONS (12)
  - RESPIRATORY FAILURE [None]
  - CARDIAC FAILURE [None]
  - MYOCARDIAL INFARCTION [None]
  - CYTOMEGALOVIRUS INFECTION [None]
  - BRONCHOPNEUMONIA [None]
  - TRAUMATIC LUNG INJURY [None]
  - PNEUMOCYSTIS JIROVECI PNEUMONIA [None]
  - C-REACTIVE PROTEIN INCREASED [None]
  - INTERSTITIAL LUNG DISEASE [None]
  - BRONCHIECTASIS [None]
  - BRONCHIOLITIS [None]
  - DRUG INTERACTION [None]
